FAERS Safety Report 8185173 (Version 3)
Quarter: 2012Q4

REPORT INFORMATION
  Report Type: 
  Country: US (occurrence: US)
  Receive Date: 20111018
  Receipt Date: 20120918
  Transmission Date: 20130627
  Serious: No
  Sender: FDA-Public Use
  Company Number: US-ASTRAZENECA-2010SE48227

PATIENT
  Age: 71 Year
  Sex: Female
  Weight: 93.9 kg

DRUGS (18)
  1. SYMBICORT PMDI [Suspect]
     Indication: CHRONIC OBSTRUCTIVE PULMONARY DISEASE
     Dosage: 320 MCG BID
     Route: 055
     Dates: start: 201001
  2. SYMBICORT PMDI [Suspect]
     Indication: ASTHMA
     Dosage: 320 MCG BID
     Route: 055
     Dates: start: 201001
  3. SYMBICORT PMDI [Suspect]
     Indication: CHRONIC OBSTRUCTIVE PULMONARY DISEASE
     Dosage: TWO PUFF, EVERY DAY
     Route: 055
     Dates: start: 201001
  4. SYMBICORT PMDI [Suspect]
     Indication: ASTHMA
     Dosage: TWO PUFF, EVERY DAY
     Route: 055
     Dates: start: 201001
  5. TOPROL XL [Suspect]
     Route: 048
  6. VENTOLIN [Concomitant]
  7. LIPITOR [Concomitant]
  8. LASIX [Concomitant]
  9. ASA [Concomitant]
  10. AVALIDE [Concomitant]
  11. NEURONTIN [Concomitant]
  12. POTASSIUM [Concomitant]
  13. VITAMIN C [Concomitant]
  14. CALCIUM [Concomitant]
  15. VITAMIN D [Concomitant]
  16. BIOTIN [Concomitant]
  17. IBUPROFEN [Concomitant]
     Dosage: PRN
  18. KEFLEX [Concomitant]
     Dosage: PRN

REACTIONS (7)
  - Pneumonia [Unknown]
  - Dyspnoea [Unknown]
  - Nasopharyngitis [Unknown]
  - Onychoclasis [Recovered/Resolved]
  - Alopecia [Unknown]
  - Aphonia [Unknown]
  - Intentional drug misuse [Unknown]
